FAERS Safety Report 21987639 (Version 1)
Quarter: 2023Q1

REPORT INFORMATION
  Report Type: Spontaneous
  Country: US (occurrence: US)
  Receive Date: 20230214
  Receipt Date: 20230214
  Transmission Date: 20230418
  Serious: Yes (Other)
  Sender: FDA-Public Use
  Company Number: US-GLENMARK PHARMACEUTICALS-2022GMK073201

PATIENT

DRUGS (1)
  1. HEATHER [Suspect]
     Active Substance: NORETHINDRONE
     Indication: Contraception
     Dosage: UNK UNK, OD
     Route: 048
     Dates: start: 2021

REACTIONS (2)
  - Drug ineffective [Unknown]
  - Menstrual disorder [Recovered/Resolved]
